FAERS Safety Report 4886273-X (Version None)
Quarter: 2006Q1

REPORT INFORMATION
  Report Type: 
  Country: None (occurrence: None)
  Receive Date: 20060118
  Receipt Date: 20060102
  Transmission Date: 20060701
  Serious: Yes (Other)
  Sender: FDA-Public Use
  Company Number: US200601000493

PATIENT
  Age: 68 Year
  Sex: Female

DRUGS (3)
  1. FORTEO [Suspect]
     Indication: OSTEOPOROSIS
     Dates: start: 20051202
  2. FORTEO [Concomitant]
  3. PHENOBARBITAL TAB [Concomitant]

REACTIONS (5)
  - DIZZINESS [None]
  - LOSS OF CONSCIOUSNESS [None]
  - SKIN DISCOLOURATION [None]
  - SKIN LACERATION [None]
  - SOMNOLENCE [None]
